FAERS Safety Report 5220317-0 (Version None)
Quarter: 2007Q1

REPORT INFORMATION
  Report Type: 
  Country: None (occurrence: None)
  Receive Date: 20061201
  Receipt Date: 20060715
  Transmission Date: 20070707
  Serious: No
  Sender: FDA-Public Use
  Company Number: 2006PV017612

PATIENT
  Age: 63 Year
  Sex: Female
  Weight: 97.0698 kg

DRUGS (6)
  1. BYETTA [Suspect]
     Indication: DIABETES MELLITUS NON-INSULIN-DEPENDENT
     Dosage: SEE IMAGE
     Route: 058
     Dates: start: 20060501, end: 20060630
  2. BYETTA [Suspect]
     Indication: DIABETES MELLITUS NON-INSULIN-DEPENDENT
     Dosage: SEE IMAGE
     Route: 058
     Dates: start: 20060701, end: 20060714
  3. BYETTA [Suspect]
     Indication: DIABETES MELLITUS NON-INSULIN-DEPENDENT
     Dosage: SEE IMAGE
     Route: 058
     Dates: start: 20060718
  4. METFORMIN HCL [Concomitant]
  5. GLIPIZIDE [Concomitant]
  6. GLIPIZIDE [Concomitant]

REACTIONS (13)
  - BACK PAIN [None]
  - BLOOD GLUCOSE DECREASED [None]
  - BLOOD PRESSURE INCREASED [None]
  - CHEST PAIN [None]
  - CONDITION AGGRAVATED [None]
  - DECREASED APPETITE [None]
  - HICCUPS [None]
  - JOINT SWELLING [None]
  - NAUSEA [None]
  - NEUROPATHY [None]
  - OEDEMA PERIPHERAL [None]
  - VOMITING [None]
  - WEIGHT DECREASED [None]
